FAERS Safety Report 11334875 (Version 1)
Quarter: 2015Q3

REPORT INFORMATION
  Report Type: Report from Study
  Country: MX (occurrence: MX)
  Receive Date: 20150804
  Receipt Date: 20150804
  Transmission Date: 20151125
  Serious: Yes (Other)
  Sender: FDA-Public Use
  Company Number: PHHY2015MX090841

PATIENT
  Sex: Male

DRUGS (2)
  1. EXFORGE [Suspect]
     Active Substance: AMLODIPINE BESYLATE\VALSARTAN
     Indication: BLOOD PRESSURE ABNORMAL
     Dosage: UNK (STARTED FROM 3 YEARS AGO)
     Route: 065
  2. OMEPRAZOLE. [Concomitant]
     Active Substance: OMEPRAZOLE
     Indication: PRODUCT USED FOR UNKNOWN INDICATION
     Dosage: UNK
     Route: 065

REACTIONS (5)
  - Diabetes mellitus [Unknown]
  - Haemoglobin decreased [Unknown]
  - Wrong technique in product usage process [Unknown]
  - Product colour issue [Unknown]
  - Pollakiuria [Recovered/Resolved]
